FAERS Safety Report 9933597 (Version 2)
Quarter: 2014Q1

REPORT INFORMATION
  Report Type: Report from Study
  Country: US (occurrence: US)
  Receive Date: 20140228
  Receipt Date: 20140228
  Transmission Date: 20141002
  Serious: Yes (Hospitalization, Other)
  Sender: FDA-Public Use
  Company Number: US-MYLANLABS-2013S1025911

PATIENT
  Age: 16 Year
  Sex: Male
  Weight: 85.2 kg

DRUGS (4)
  1. AMNESTEEM CAPSULES [Suspect]
     Indication: ACNE
     Route: 048
     Dates: start: 20130905, end: 20131112
  2. CLARAVIS [Suspect]
  3. SEROQUEL [Concomitant]
  4. TRIAMCINOLONE [Concomitant]

REACTIONS (2)
  - Psychotic disorder [Not Recovered/Not Resolved]
  - Mental disorder [Not Recovered/Not Resolved]
